FAERS Safety Report 18784106 (Version 1)
Quarter: 2021Q1

REPORT INFORMATION
  Report Type: Spontaneous
  Country: BR (occurrence: BR)
  Receive Date: 20210126
  Receipt Date: 20210126
  Transmission Date: 20210419
  Serious: Yes (Hospitalization)
  Sender: FDA-Public Use
  Company Number: BR-ABBVIE-21P-020-3744345-00

PATIENT
  Sex: Female
  Weight: 9 kg

DRUGS (2)
  1. DEPAKENE [Suspect]
     Active Substance: VALPROIC ACID
     Indication: SEIZURE
  2. DEPAKENE [Suspect]
     Active Substance: VALPROIC ACID
     Indication: INFANTILE SPASMS
     Dosage: DAILY DOSE: STARTED WHEN PATIENT WAS 5 MONTHS OLD; THERAPY LASTED FOR A MONTH?50 MG/ML
     Route: 048

REACTIONS (11)
  - Oral discomfort [Recovered/Resolved]
  - Blood gases abnormal [Unknown]
  - Bronchospasm [Recovered/Resolved]
  - Off label use [Unknown]
  - Secretion discharge [Recovered/Resolved]
  - Blood count abnormal [Unknown]
  - Dysphagia [Unknown]
  - Respiratory distress [Unknown]
  - Product use issue [Unknown]
  - Dyspnoea [Recovered/Resolved]
  - Eating disorder [Recovered/Resolved]

NARRATIVE: CASE EVENT DATE: 202001
